FAERS Safety Report 4700655-8 (Version None)
Quarter: 2005Q2

REPORT INFORMATION
  Report Type: 
  Country: None (occurrence: None)
  Receive Date: 20050627
  Receipt Date: 20030910
  Transmission Date: 20051028
  Serious: Yes (Hospitalization, Disabling, Other)
  Sender: FDA-Public Use
  Company Number: US-MERCK-0309USA01174

PATIENT
  Age: 49 Year
  Sex: Female
  Weight: 61 kg

DRUGS (28)
  1. VIOXX [Suspect]
     Indication: OSTEOARTHRITIS
     Route: 048
     Dates: start: 19991129
  2. VIOXX [Suspect]
     Route: 048
     Dates: start: 20030301, end: 20030101
  3. VIOXX [Suspect]
     Route: 048
     Dates: start: 20001218
  4. VIOXX [Suspect]
     Route: 048
     Dates: start: 20010829, end: 20011015
  5. VIOXX [Suspect]
     Route: 048
     Dates: start: 20011016
  6. VIOXX [Suspect]
     Route: 065
     Dates: end: 20020626
  7. VIOXX [Suspect]
     Route: 048
     Dates: end: 20040103
  8. VIOXX [Suspect]
     Indication: FIBROMYALGIA
     Route: 048
     Dates: start: 19991129
  9. VIOXX [Suspect]
     Route: 048
     Dates: start: 20030301, end: 20030101
  10. VIOXX [Suspect]
     Route: 048
     Dates: start: 20001218
  11. VIOXX [Suspect]
     Route: 048
     Dates: start: 20010829, end: 20011015
  12. VIOXX [Suspect]
     Route: 048
     Dates: start: 20011016
  13. VIOXX [Suspect]
     Route: 065
     Dates: end: 20020626
  14. VIOXX [Suspect]
     Route: 048
     Dates: end: 20040103
  15. ANALGESIC OR ANESTHETIC (UNSPECIFIED) [Concomitant]
     Route: 065
  16. PREMARIN [Concomitant]
     Route: 065
     Dates: start: 19920101
  17. [THERAPY UNSPECIFIED] [Concomitant]
     Route: 065
     Dates: start: 19980101
  18. NEURONTIN [Concomitant]
     Indication: PAIN
     Route: 065
     Dates: start: 20010813, end: 20010901
  19. LASIX [Concomitant]
     Indication: OEDEMA PERIPHERAL
     Route: 065
     Dates: start: 19840401
  20. ACTONEL [Concomitant]
     Route: 065
  21. VITAMIN E [Concomitant]
     Route: 065
  22. CALCIUM CARBONATE [Concomitant]
     Route: 065
  23. ASPIRIN [Concomitant]
     Route: 048
  24. PAXIL [Concomitant]
     Indication: DEPRESSION
     Route: 048
  25. ELAVIL [Concomitant]
     Indication: FIBROMYALGIA
     Route: 048
     Dates: start: 20020121
  26. OXYCONTIN [Concomitant]
     Route: 065
  27. VICODIN [Concomitant]
     Route: 065
  28. VITAMINS (UNSPECIFIED) [Concomitant]
     Route: 065

REACTIONS (33)
  - ANXIETY [None]
  - BRONCHITIS [None]
  - BURSITIS [None]
  - CARPAL TUNNEL SYNDROME [None]
  - CERVICOBRACHIAL SYNDROME [None]
  - CHRONIC OBSTRUCTIVE PULMONARY DISEASE [None]
  - CONTUSION [None]
  - COUGH [None]
  - DEPRESSION [None]
  - DRUG INEFFECTIVE [None]
  - DYSPEPSIA [None]
  - DYSTHYMIC DISORDER [None]
  - FALL [None]
  - FIBROMYALGIA [None]
  - GRAVITATIONAL OEDEMA [None]
  - HYPERTENSION [None]
  - INCREASED TENDENCY TO BRUISE [None]
  - LACUNAR INFARCTION [None]
  - LOWER RESPIRATORY TRACT INFECTION [None]
  - MIGRAINE [None]
  - NEURALGIA [None]
  - OEDEMA PERIPHERAL [None]
  - OSTEOPENIA [None]
  - OSTEOPOROSIS [None]
  - PAIN IN EXTREMITY [None]
  - RADIUS FRACTURE [None]
  - RENAL DISORDER [None]
  - ROTATOR CUFF SYNDROME [None]
  - SINUSITIS [None]
  - SPINAL OSTEOARTHRITIS [None]
  - STRESS [None]
  - TENDONITIS [None]
  - URINARY TRACT INFECTION [None]
